FAERS Safety Report 9653375 (Version 1)
Quarter: 2013Q4

REPORT INFORMATION
  Report Type: Spontaneous
  Country: US (occurrence: None)
  Receive Date: 20131028
  Receipt Date: 20131028
  Transmission Date: 20140711
  Serious: Yes (Other)
  Sender: FDA-Public Use
  Company Number: None

PATIENT
  Age: 43 Year
  Sex: Female
  Weight: 66.68 kg

DRUGS (2)
  1. MIRVASO [Suspect]
     Indication: ROSACEA
     Dosage: APPLY TO AFFECTED AREA ONCE DAILY APPLIED TO A SURFACE, USUALLY THE SKIN
     Route: 062
     Dates: start: 20130921, end: 20130923
  2. MIRVASO [Suspect]
     Dosage: APPLY TO AFFECTED AREA ONCE DAILY APPLIED TO A SURFACE, USUALLY THE SKIN
     Route: 062
     Dates: start: 20130921, end: 20130923

REACTIONS (9)
  - Rosacea [None]
  - Condition aggravated [None]
  - Flushing [None]
  - Hot flush [None]
  - Dry skin [None]
  - Dermatitis [None]
  - Burning sensation [None]
  - Swelling face [None]
  - Skin tightness [None]
